FAERS Safety Report 5964570-4 (Version None)
Quarter: 2008Q4

REPORT INFORMATION
  Report Type: 
  Country: None (occurrence: None)
  Receive Date: 20081122
  Receipt Date: 20081122
  Transmission Date: 20090506
  Serious: Yes (Hospitalization, Disabling)
  Sender: FDA-Public Use
  Company Number: None

PATIENT
  Age: 37 Year
  Sex: Female
  Weight: 95.2554 kg

DRUGS (3)
  1. FLUTICASONE PROPIONATE [Suspect]
     Indication: SINUS CONGESTION
     Dosage: 50 MCG AS NEEDED
     Dates: start: 19960610
  2. FLUTICASONE PROPIONATE [Suspect]
     Indication: SINUS CONGESTION
     Dosage: 50 MCG AS NEEDED
     Dates: start: 20071111
  3. FLUTICASONE PROPIONATE [Suspect]
     Indication: SINUS CONGESTION
     Dosage: 50 MCG AS NEEDED
     Dates: start: 20081009

REACTIONS (11)
  - DIARRHOEA [None]
  - HEPATIC FUNCTION ABNORMAL [None]
  - MIGRAINE [None]
  - MYALGIA [None]
  - NAUSEA [None]
  - PYREXIA [None]
  - TINNITUS [None]
  - UNEMPLOYMENT [None]
  - VISION BLURRED [None]
  - VOMITING PROJECTILE [None]
  - WEIGHT DECREASED [None]
